FAERS Safety Report 8834205 (Version 1)
Quarter: 2012Q4

REPORT INFORMATION
  Report Type: 
  Country: US (occurrence: US)
  Receive Date: 20121010
  Receipt Date: 20121010
  Transmission Date: 20130627
  Serious: No
  Sender: FDA-Public Use
  Company Number: US-BAYER-2012-104863

PATIENT
  Age: 63 Year
  Sex: Male
  Weight: 113.38 kg

DRUGS (2)
  1. ALEVE CAPLET/TABLET,MIDOL EXTENDED RELIEF CAPLET [Suspect]
     Indication: MYALGIA
     Dosage: 3 DF, BID
     Route: 048
     Dates: start: 20120927, end: 20120930
  2. BAYER CHEWABLE LOW DOSE BABY ASPIRIN TABLET ORANGE [Concomitant]
     Indication: ISCHAEMIC HEART DISEASE PROPHYLAXIS

REACTIONS (1)
  - Myalgia [Recovered/Resolved]
